FAERS Safety Report 8174930-1 (Version None)
Quarter: 2012Q1

REPORT INFORMATION
  Report Type: 
  Country: None (occurrence: None)
  Receive Date: 20120229
  Receipt Date: 20110914
  Transmission Date: 20120608
  Serious: No
  Sender: FDA-Public Use
  Company Number: US-GLAXOSMITHKLINE-A0944609A

PATIENT
  Age: 51 Year
  Sex: Male

DRUGS (3)
  1. VALTREX [Suspect]
     Indication: GENITAL HERPES
     Dosage: 1G PER DAY
     Route: 048
     Dates: start: 20110101
  2. UNSPECIFIED MEDICATION [Concomitant]
     Indication: FLUID RETENTION
  3. ASPIRIN [Concomitant]

REACTIONS (3)
  - OCULAR HYPERAEMIA [None]
  - BLOOD PRESSURE INCREASED [None]
  - HEADACHE [None]
